FAERS Safety Report 9105743 (Version 2)
Quarter: 2013Q1

REPORT INFORMATION
  Report Type: Spontaneous
  Country: JP (occurrence: JP)
  Receive Date: 20130220
  Receipt Date: 20130301
  Transmission Date: 20140127
  Serious: No
  Sender: FDA-Public Use
  Company Number: PHHY2013JP016183

PATIENT
  Age: 82 Year
  Sex: Female

DRUGS (3)
  1. TEGRETOL [Suspect]
     Indication: TRIGEMINAL NEURALGIA
     Dosage: 500 MG, (DAILY)
     Route: 048
     Dates: start: 20090605
  2. MUCOSTA [Concomitant]
     Dosage: 300 MG, UNK
     Route: 048
     Dates: start: 20091023, end: 20100211
  3. GASTER [Concomitant]
     Dosage: 20 MG, UNK
     Route: 048
     Dates: start: 20090212, end: 20101008

REACTIONS (2)
  - Gastric polyps [Unknown]
  - Drug ineffective [Not Recovered/Not Resolved]
